FAERS Safety Report 5802505-5 (Version None)
Quarter: 2008Q3

REPORT INFORMATION
  Report Type: 
  Country: None (occurrence: None)
  Receive Date: 20080708
  Receipt Date: 20080627
  Transmission Date: 20090109
  Serious: Yes (Hospitalization)
  Sender: FDA-Public Use
  Company Number: IE-WYE-G01721108

PATIENT
  Sex: Male

DRUGS (1)
  1. EFFEXOR XR [Suspect]
     Indication: DEPRESSION
     Dosage: 375 MG DAILY
     Dates: start: 20050801, end: 20080618

REACTIONS (4)
  - ANGINA PECTORIS [None]
  - ELECTROCARDIOGRAM CHANGE [None]
  - MEDICATION ERROR [None]
  - OVERDOSE [None]
